FAERS Safety Report 6952112-6 (Version None)
Quarter: 2010Q3

REPORT INFORMATION
  Report Type: 
  Country: None (occurrence: None)
  Receive Date: 20100829
  Receipt Date: 20100421
  Transmission Date: 20110219
  Serious: No
  Sender: FDA-Public Use
  Company Number: US-ABBOTT-10P-163-0641075-00

PATIENT
  Sex: Female
  Weight: 126.21 kg

DRUGS (16)
  1. NIASPAN [Suspect]
     Indication: BLOOD CHOLESTEROL INCREASED
     Route: 048
     Dates: start: 20100420
  2. METFORMIN [Concomitant]
     Indication: DIABETES MELLITUS
     Route: 048
  3. SYNTHROID [Concomitant]
     Indication: HYPOTHYROIDISM
     Route: 048
  4. CARVEDILOL [Concomitant]
     Indication: HYPERTENSION
     Route: 048
  5. GABAPENTIN [Concomitant]
     Indication: PRODUCT USED FOR UNKNOWN INDICATION
     Route: 048
  6. TRICOR [Concomitant]
     Indication: BLOOD CHOLESTEROL INCREASED
     Route: 048
  7. SPIRONOLACTONE [Concomitant]
     Indication: DIURETIC THERAPY
     Route: 048
  8. WELCHOL [Concomitant]
     Indication: COLITIS
     Dosage: 1-2 ONCE A DAY;
     Route: 048
  9. IMDUR [Concomitant]
     Indication: TACHYCARDIA
     Route: 048
  10. LOVAZA [Concomitant]
     Indication: SUPPLEMENTATION THERAPY
     Route: 048
  11. VITAMIN D [Concomitant]
     Indication: VITAMIN SUPPLEMENTATION
     Route: 048
  12. ALEVE (CAPLET) [Concomitant]
     Indication: ARTHRALGIA
     Dosage: 2 IN 1 DAY AS NEEDED
     Route: 048
  13. GLUCOSAMINE + CHONDROITIN WITH MSM [Concomitant]
     Indication: SUPPLEMENTATION THERAPY
     Route: 048
  14. VICTOZA [Concomitant]
     Indication: DIABETES MELLITUS
     Route: 058
     Dates: start: 20100420
  15. ASPIRIN [Concomitant]
     Indication: FLUSHING
     Dosage: 2 IN 1 DAY AT BED TIME
     Route: 048
     Dates: start: 20100420
  16. ASPIRIN [Concomitant]
     Indication: PROPHYLAXIS

REACTIONS (4)
  - FEELING HOT [None]
  - FLUSHING [None]
  - PALPITATIONS [None]
  - PARAESTHESIA [None]
